FAERS Safety Report 14884818 (Version 2)
Quarter: 2018Q3

REPORT INFORMATION
  Report Type: Spontaneous
  Country: US (occurrence: US)
  Receive Date: 20180511
  Receipt Date: 20180706
  Transmission Date: 20181010
  Serious: Yes (Other)
  Sender: FDA-Public Use
  Company Number: US-GLAXOSMITHKLINE-US2018079630

PATIENT
  Sex: Male

DRUGS (1)
  1. SENSODYNE REPAIR AND PROTECT [Suspect]
     Active Substance: STANNOUS FLUORIDE
     Indication: PRODUCT USED FOR UNKNOWN INDICATION
     Dosage: UNK

REACTIONS (19)
  - Hypoaesthesia oral [Unknown]
  - Eye irritation [Unknown]
  - Dizziness [Recovered/Resolved]
  - Hypoaesthesia [Recovered/Resolved]
  - Oral discomfort [Unknown]
  - Ageusia [Recovering/Resolving]
  - Disturbance in attention [Unknown]
  - Hypoacusis [Unknown]
  - Product quality issue [Unknown]
  - Brain injury [Unknown]
  - Dysstasia [Unknown]
  - Muscular weakness [Unknown]
  - Mastication disorder [Unknown]
  - Ill-defined disorder [Unknown]
  - Nervous system disorder [Unknown]
  - Hypoaesthesia eye [Unknown]
  - Poisoning [Unknown]
  - Sensory disturbance [Unknown]
  - Drug ineffective [Unknown]
